FAERS Safety Report 16970712 (Version 3)
Quarter: 2019Q4

REPORT INFORMATION
  Report Type: Spontaneous
  Country: US (occurrence: US)
  Receive Date: 20191029
  Receipt Date: 20191211
  Transmission Date: 20200122
  Serious: Yes (Hospitalization)
  Sender: FDA-Public Use
  Company Number: US-VIFOR (INTERNATIONAL) INC.-VIT-2019-09999

PATIENT
  Age: 47 Year
  Sex: Male

DRUGS (1)
  1. VELTASSA [Suspect]
     Active Substance: PATIROMER
     Indication: HYPERKALAEMIA
     Route: 048
     Dates: start: 20190827, end: 2019

REACTIONS (4)
  - Furuncle [Unknown]
  - Localised infection [Unknown]
  - Blood glucose increased [Unknown]
  - Toe amputation [Unknown]

NARRATIVE: CASE EVENT DATE: 2019
